FAERS Safety Report 10459676 (Version 1)
Quarter: 2014Q3

REPORT INFORMATION
  Report Type: Spontaneous
  Country: FR (occurrence: FR)
  Receive Date: 20140917
  Receipt Date: 20140917
  Transmission Date: 20150326
  Serious: Yes (Hospitalization)
  Sender: FDA-Public Use
  Company Number: FR-BRISTOL-MYERS SQUIBB COMPANY-21396494

PATIENT
  Age: 49 Year
  Sex: Female

DRUGS (4)
  1. ABILIFY [Suspect]
     Active Substance: ARIPIPRAZOLE
     Indication: SCHIZOAFFECTIVE DISORDER
     Dates: end: 20140811
  2. IMOVANE [Suspect]
     Active Substance: ZOPICLONE
     Indication: SCHIZOAFFECTIVE DISORDER
     Route: 048
     Dates: end: 20140811
  3. MIANSERIN [Suspect]
     Active Substance: MIANSERIN
     Indication: SCHIZOAFFECTIVE DISORDER
     Dosage: 1 DF = 120 UNITS NOS.
     Route: 048
  4. SEROPLEX [Suspect]
     Active Substance: ESCITALOPRAM OXALATE
     Indication: SCHIZOAFFECTIVE DISORDER
     Dosage: IN MORNING

REACTIONS (4)
  - Renal failure [Unknown]
  - Off label use [Unknown]
  - Rhabdomyolysis [Recovering/Resolving]
  - Pyrexia [Recovered/Resolved]

NARRATIVE: CASE EVENT DATE: 20140811
